FAERS Safety Report 18572139 (Version 2)
Quarter: 2020Q4

REPORT INFORMATION
  Report Type: Spontaneous
  Country: DE (occurrence: DE)
  Receive Date: 20201202
  Receipt Date: 20201230
  Transmission Date: 20210114
  Serious: Yes (Other)
  Sender: FDA-Public Use
  Company Number: DE-US-PROVELL PHARMACEUTICALS LLC-9201387

PATIENT
  Age: 70 Year
  Sex: Female
  Weight: 70 kg

DRUGS (10)
  1. ASPIRIN                            /00002701/ [Concomitant]
     Active Substance: ASPIRIN
     Indication: STENT PLACEMENT
     Dates: start: 202011
  2. L-THYROXIN [Suspect]
     Active Substance: LEVOTHYROXINE SODIUM
     Indication: HYPOTHYROIDISM
     Dates: start: 200011
  3. DEHYDRO SANOL TRI                  /00346401/ [Concomitant]
     Indication: CARDIAC DISORDER
     Dates: start: 200011
  4. INSULIN [Concomitant]
     Active Substance: INSULIN NOS
     Indication: PRODUCT USED FOR UNKNOWN INDICATION
     Dates: start: 200011
  5. ASPIRIN                            /00002701/ [Concomitant]
     Active Substance: ASPIRIN
     Indication: HEADACHE
  6. NOVORAPID [Concomitant]
     Active Substance: INSULIN ASPART
     Indication: MONOGENIC DIABETES
     Dates: start: 202011
  7. DEHYDRO SANOL TRI                  /00346401/ [Concomitant]
     Indication: URINARY RETENTION
  8. LOPERAMIDE [Suspect]
     Active Substance: LOPERAMIDE
     Indication: GASTROINTESTINAL DISORDER
  9. ASPIRIN                            /00002701/ [Concomitant]
     Active Substance: ASPIRIN
     Indication: CARDIAC DISORDER
  10. ASPIRIN                            /00002701/ [Concomitant]
     Active Substance: ASPIRIN
     Indication: DIZZINESS

REACTIONS (5)
  - Spinal operation [Recovered/Resolved]
  - Headache [Recovering/Resolving]
  - Tachycardia [Not Recovered/Not Resolved]
  - Dizziness [Recovering/Resolving]
  - Palpitations [Recovering/Resolving]

NARRATIVE: CASE EVENT DATE: 2019
